FAERS Safety Report 5048668-3 (Version None)
Quarter: 2006Q3

REPORT INFORMATION
  Report Type: 
  Country: None (occurrence: None)
  Receive Date: 20060705
  Receipt Date: 20060623
  Transmission Date: 20061208
  Serious: Yes (Hospitalization)
  Sender: FDA-Public Use
  Company Number: 111146ISR

PATIENT
  Age: 71 Year
  Sex: Female

DRUGS (3)
  1. FLUOROURACIL [Suspect]
     Indication: GASTRIC CANCER
     Dosage: 3490 MILLIGRAM, INTRAVENOUS (NOS)
     Route: 042
     Dates: start: 20060419
  2. FOLINIC ACID [Concomitant]
  3. CISPLATIN [Concomitant]

REACTIONS (4)
  - ERYTHEMA [None]
  - EXTRAVASATION [None]
  - INJECTION SITE DISCHARGE [None]
  - WRONG TECHNIQUE IN DRUG USAGE PROCESS [None]
